FAERS Safety Report 5648229-9 (Version None)
Quarter: 2008Q1

REPORT INFORMATION
  Report Type: 
  Country: None (occurrence: None)
  Receive Date: 20080304
  Receipt Date: 20080228
  Transmission Date: 20080703
  Serious: Yes (Life-Threatening)
  Sender: FDA-Public Use
  Company Number: JP-BRISTOL-MYERS SQUIBB COMPANY-14068589

PATIENT
  Age: 67 Year
  Sex: Male

DRUGS (6)
  1. TAXOL [Suspect]
     Indication: LUNG SQUAMOUS CELL CARCINOMA STAGE UNSPECIFIED
     Route: 041
     Dates: start: 20080115, end: 20080129
  2. PARAPLATIN [Suspect]
     Indication: LUNG SQUAMOUS CELL CARCINOMA STAGE UNSPECIFIED
     Route: 041
     Dates: start: 20080115, end: 20080115
  3. DECADRON [Concomitant]
     Route: 041
     Dates: start: 20080115, end: 20080129
  4. ZANTAC 150 [Concomitant]
     Route: 041
  5. KYTRIL [Concomitant]
     Route: 041
     Dates: start: 20080115, end: 20080129
  6. FAMOTIDINE [Concomitant]
     Route: 041
     Dates: start: 20080115, end: 20080129

REACTIONS (1)
  - PANCREATITIS ACUTE [None]
